FAERS Safety Report 14641629 (Version 1)
Quarter: 2018Q1

REPORT INFORMATION
  Report Type: Spontaneous
  Country: US (occurrence: US)
  Receive Date: 20180315
  Receipt Date: 20180315
  Transmission Date: 20180509
  Serious: No
  Sender: FDA-Public Use
  Company Number: US-LANNETT COMPANY, INC.-US-2017LAN001003

PATIENT

DRUGS (4)
  1. FLUOXETINE HYDROCHLORIDE. [Suspect]
     Active Substance: FLUOXETINE HYDROCHLORIDE
     Dosage: 7.5 ML, QD
     Route: 048
     Dates: start: 20170809
  2. FLUOXETINE HYDROCHLORIDE. [Suspect]
     Active Substance: FLUOXETINE HYDROCHLORIDE
     Dosage: 30 ML, QD
     Route: 048
     Dates: start: 201707, end: 20170808
  3. FLUOXETINE HYDROCHLORIDE. [Suspect]
     Active Substance: FLUOXETINE HYDROCHLORIDE
     Indication: DEPRESSION
     Dosage: UNK
     Route: 048
  4. FLUOXETINE HYDROCHLORIDE. [Suspect]
     Active Substance: FLUOXETINE HYDROCHLORIDE
     Dosage: 20 ML, QD
     Route: 048
     Dates: end: 201707

REACTIONS (5)
  - Nausea [Unknown]
  - Psychogenic seizure [Unknown]
  - Vomiting [Unknown]
  - Overdose [Unknown]
  - Drug dispensing error [Unknown]
